FAERS Safety Report 4278931-5 (Version None)
Quarter: 2004Q1

REPORT INFORMATION
  Report Type: 
  Country: None (occurrence: None)
  Receive Date: 20040126
  Receipt Date: 20040115
  Transmission Date: 20041129
  Serious: Yes (Hospitalization)
  Sender: FDA-Public Use
  Company Number: US-BRISTOL-MYERS SQUIBB COMPANY-12479739

PATIENT
  Age: 57 Year
  Sex: Male

DRUGS (2)
  1. DEFINITY [Suspect]
     Indication: CARDIAC STRESS TEST
     Dosage: DOSE: A TOTAL OF 3CC RECEIVED OF DEFINITY 1CC + SALINE 9CC MIXTURE.
     Route: 040
     Dates: start: 20040115, end: 20040115
  2. NITRO [Concomitant]
     Dosage: DOSE: ^A NITRO PILL^
     Dates: start: 20040115

REACTIONS (3)
  - COLD SWEAT [None]
  - LOSS OF CONSCIOUSNESS [None]
  - PALLOR [None]
